FAERS Safety Report 6610079-4 (Version None)
Quarter: 2010Q1

REPORT INFORMATION
  Report Type: 
  Country: None (occurrence: None)
  Receive Date: 20100216
  Receipt Date: 20090325
  Transmission Date: 20100710
  Serious: Yes (Death)
  Sender: FDA-Public Use
  Company Number: MC200900064

PATIENT
  Age: 76 Year
  Sex: Male
  Weight: 81.6 kg

DRUGS (13)
  1. ANGIOMAX [Suspect]
     Indication: PERCUTANEOUS CORONARY INTERVENTION
     Dosage: 0.75 MG/KG, BOLUS, INTRAVENOUS; 1.75 MG,HR, INTRAVENOUS
     Route: 042
     Dates: start: 20090217, end: 20090217
  2. PLAVIX [Suspect]
     Dosage: 75 MG, QD
  3. ASPIRIN [Suspect]
     Dosage: 81 MG, QD; 162 M, SINGLE
     Dates: start: 20090311, end: 20090311
  4. TOPROL-XL [Concomitant]
  5. BENICAR [Concomitant]
  6. ZOCOR [Concomitant]
  7. IMDUR [Concomitant]
  8. TRICOR  /00499301/ (FENOFIBRATE) [Concomitant]
  9. LANOXIN [Concomitant]
  10. LOVAZA [Concomitant]
  11. NEXIUM [Concomitant]
  12. MULTIVITAMIN /00831701/(VITAMINS NOS) [Concomitant]
  13. NITROGLYCERIN [Concomitant]

REACTIONS (6)
  - BLOOD PRESSURE INCREASED [None]
  - CEREBRAL HAEMORRHAGE [None]
  - DISORIENTATION [None]
  - HEADACHE [None]
  - SUBARACHNOID HAEMORRHAGE [None]
  - SUBDURAL HAEMORRHAGE [None]
